FAERS Safety Report 5707191-0 (Version None)
Quarter: 2008Q2

REPORT INFORMATION
  Report Type: 
  Country: None (occurrence: None)
  Receive Date: 20080416
  Receipt Date: 20080407
  Transmission Date: 20081010
  Serious: Yes (Hospitalization)
  Sender: FDA-Public Use
  Company Number: JP-MERCK-0804USA02251

PATIENT
  Age: 60 Year
  Sex: Female

DRUGS (5)
  1. PEPCID RPD [Suspect]
     Indication: GASTRITIS
     Route: 048
  2. NAUZELIN [Suspect]
     Route: 048
  3. ZOLPIDEM TARTRATE [Concomitant]
     Route: 048
  4. ZADITEN [Concomitant]
     Route: 065
  5. LOXONIN [Concomitant]
     Route: 048

REACTIONS (1)
  - HEPATITIS [None]
